FAERS Safety Report 6300879-2 (Version None)
Quarter: 2009Q3

REPORT INFORMATION
  Report Type: 
  Country: None (occurrence: None)
  Receive Date: 20090807
  Receipt Date: 20090803
  Transmission Date: 20100115
  Serious: Yes (Other)
  Sender: FDA-Public Use
  Company Number: US-BAYER-200928890NA

PATIENT
  Age: 39 Year
  Sex: Female
  Weight: 82 kg

DRUGS (2)
  1. MAGNEVIST [Suspect]
     Indication: NUCLEAR MAGNETIC RESONANCE IMAGING BRAIN
     Dosage: TOTAL DAILY DOSE: 17 ML  UNIT DOSE: 50 ML
     Route: 042
     Dates: start: 20090730, end: 20090730
  2. INHALER [Concomitant]

REACTIONS (4)
  - OROPHARYNGEAL DISCOMFORT [None]
  - SWELLING FACE [None]
  - THROAT IRRITATION [None]
  - URTICARIA [None]
